FAERS Safety Report 9957514 (Version 2)
Quarter: 2014Q1

REPORT INFORMATION
  Report Type: Report from Study
  Country: US (occurrence: US)
  Receive Date: 20140304
  Receipt Date: 20140304
  Transmission Date: 20141002
  Serious: No
  Sender: FDA-Public Use
  Company Number: US-ABBVIE-13P-163-1092263-00

PATIENT
  Age: 67 Year
  Sex: Male
  Weight: 93.07 kg

DRUGS (3)
  1. HUMIRA [Suspect]
     Dosage: 4 WEEKS AFTER 160MG DOSE
     Route: 058
     Dates: start: 2012, end: 20130601
  2. HUMIRA [Suspect]
     Indication: ILL-DEFINED DISORDER
     Route: 058
     Dates: start: 201203, end: 201203
  3. HUMIRA [Suspect]
     Dosage: TWO WEEKS AFTER 160MG DOSE
     Route: 058
     Dates: start: 2012, end: 2012

REACTIONS (2)
  - Drug ineffective [Not Recovered/Not Resolved]
  - Drug specific antibody present [Not Recovered/Not Resolved]
